FAERS Safety Report 8921127 (Version 4)
Quarter: 2013Q3

REPORT INFORMATION
  Report Type: Report from Study
  Country: JP (occurrence: JP)
  Receive Date: 20121121
  Receipt Date: 20130816
  Transmission Date: 20140515
  Serious: Yes (Other)
  Sender: FDA-Public Use
  Company Number: JP-VERTEX PHARMACEUTICAL INC.-AE-2012-007722

PATIENT
  Age: 57 Year
  Sex: Female

DRUGS (15)
  1. VX-950 (TELAPREVIR) [Suspect]
     Indication: CHRONIC HEPATITIS C
     Dosage: 1500 MG, QD
     Route: 048
     Dates: start: 20120209, end: 20120411
  2. VX-950 (TELAPREVIR) [Suspect]
     Dosage: 1000 MG, QD
     Route: 048
     Dates: start: 20120412, end: 20120425
  3. VX-950 (TELAPREVIR) [Suspect]
     Dosage: 500 MG, QD
     Route: 048
     Dates: start: 20120426, end: 20120430
  4. RIBAVIRIN [Suspect]
     Indication: CHRONIC HEPATITIS C
     Dosage: 800 MG, QD
     Route: 048
     Dates: start: 20120209, end: 20120229
  5. RIBAVIRIN [Suspect]
     Dosage: 600 MG, QD
     Route: 048
     Dates: start: 20120301, end: 20120314
  6. RIBAVIRIN [Suspect]
     Dosage: 400 MG, QD
     Route: 048
     Dates: start: 20120315, end: 20120404
  7. RIBAVIRIN [Suspect]
     Dosage: 200 MG, QD
     Route: 048
     Dates: start: 20120405, end: 20120426
  8. RIBAVIRIN [Suspect]
     Dosage: 200 MG/3 DAYS
     Route: 048
     Dates: start: 20120531, end: 20120605
  9. RIBAVIRIN [Suspect]
     Dosage: 200 MG/2 DAYS
     Dates: start: 20120606, end: 20120613
  10. RIBAVIRIN [Suspect]
     Dosage: 200 MG, QD
     Dates: start: 20120614, end: 20120620
  11. RIBAVIRIN [Suspect]
     Dosage: 400 MG, QD
     Route: 048
     Dates: start: 20120621, end: 20120726
  12. PEGINTERFERON ALFA-2B [Suspect]
     Indication: CHRONIC HEPATITIS C
     Dosage: 1.7 ?G/KG, QW
     Route: 051
     Dates: start: 20120209, end: 20120719
  13. URSO [Concomitant]
     Dosage: 900 MG, QD
     Route: 048
     Dates: end: 20120229
  14. SELBEX [Concomitant]
     Dosage: 150 MG, QD
     Route: 048
     Dates: start: 20120209, end: 20120726
  15. SELBEX [Concomitant]
     Route: 048
     Dates: start: 20120209

REACTIONS (2)
  - Skin exfoliation [Recovered/Resolved]
  - Haemoglobin decreased [Not Recovered/Not Resolved]
